FAERS Safety Report 7617238 (Version 4)
Quarter: 2013Q1

REPORT INFORMATION
  Report Type: Report from Study
  Country: JP (occurrence: JP)
  Receive Date: 20101005
  Receipt Date: 20130103
  Transmission Date: 20140127
  Serious: Yes (Hospitalization, Other)
  Sender: FDA-Public Use
  Company Number: JP-ROCHE-614115

PATIENT
  Age: 28 Year
  Sex: Female
  Weight: 53 kg

DRUGS (40)
  1. TOCILIZUMAB [Suspect]
     Indication: RHEUMATOID ARTHRITIS
     Route: 041
     Dates: start: 20081225, end: 20081225
  2. TOCILIZUMAB [Suspect]
     Route: 041
     Dates: start: 20090123, end: 20090123
  3. TOCILIZUMAB [Suspect]
     Route: 041
     Dates: start: 20090402, end: 20090402
  4. TOCILIZUMAB [Suspect]
     Route: 041
     Dates: start: 20090430, end: 20090430
  5. TOCILIZUMAB [Suspect]
     Route: 041
     Dates: start: 20090521, end: 20090521
  6. TOCILIZUMAB [Suspect]
     Route: 041
     Dates: start: 20090618, end: 20090618
  7. TOCILIZUMAB [Suspect]
     Route: 041
     Dates: start: 20090716, end: 20091203
  8. TOCILIZUMAB [Suspect]
     Route: 041
     Dates: start: 20100121, end: 20100902
  9. TOCILIZUMAB [Suspect]
     Route: 041
     Dates: start: 20100121, end: 20100121
  10. TOCILIZUMAB [Suspect]
     Route: 041
     Dates: start: 20100218, end: 20100218
  11. TOCILIZUMAB [Suspect]
     Route: 041
     Dates: start: 20100318, end: 20100318
  12. TOCILIZUMAB [Suspect]
     Route: 041
     Dates: start: 20100424, end: 20100424
  13. TOCILIZUMAB [Suspect]
     Route: 041
     Dates: start: 20100601, end: 20120601
  14. TOCILIZUMAB [Suspect]
     Route: 041
     Dates: start: 20100706, end: 20100706
  15. TOCILIZUMAB [Suspect]
     Route: 041
     Dates: start: 20100805, end: 20100805
  16. TOCILIZUMAB [Suspect]
     Route: 041
     Dates: start: 20100902, end: 20100902
  17. TOCILIZUMAB [Suspect]
     Route: 041
     Dates: start: 20101007, end: 20101007
  18. TOCILIZUMAB [Suspect]
     Route: 041
     Dates: start: 20101117, end: 20101117
  19. TOCILIZUMAB [Suspect]
     Route: 041
     Dates: start: 20101215, end: 20101215
  20. TOCILIZUMAB [Suspect]
     Route: 041
     Dates: start: 20110127, end: 20110913
  21. TOCILIZUMAB [Suspect]
     Dosage: INFUSION RATE DECREASED
     Route: 041
  22. TACROLIMUS [Suspect]
     Indication: RHEUMATOID ARTHRITIS
     Route: 048
     Dates: start: 20080918, end: 20081025
  23. TACROLIMUS [Suspect]
     Route: 048
     Dates: start: 20081026, end: 20081224
  24. TACROLIMUS [Suspect]
     Dosage: INFUSION RATE DECREASED
     Route: 048
     Dates: start: 20090318
  25. PREDONINE [Concomitant]
     Indication: RHEUMATOID ARTHRITIS
     Route: 048
  26. PREDONINE [Concomitant]
     Route: 048
     Dates: start: 20081010, end: 20081016
  27. PREDONINE [Concomitant]
     Route: 048
     Dates: start: 20081017, end: 20081027
  28. PREDONINE [Concomitant]
     Route: 048
     Dates: start: 20081028, end: 20081106
  29. PREDONINE [Concomitant]
     Route: 048
     Dates: start: 20081107, end: 20090108
  30. PREDONINE [Concomitant]
     Route: 048
     Dates: start: 20090109, end: 20090520
  31. PREDONINE [Concomitant]
     Route: 048
  32. PREDONINE [Concomitant]
     Route: 048
  33. ISCOTIN [Concomitant]
     Indication: ANTIBIOTIC PROPHYLAXIS
     Dosage: FORM: ORAL FORMULATION (NOT OTHERWISE SPECIFIED)
     Route: 048
  34. WARFARIN POTASSIUM [Concomitant]
     Dosage: DRUG REPORTED AS WARFARIN
     Route: 048
  35. WARFARIN POTASSIUM [Concomitant]
     Route: 048
  36. TAKEPRON [Concomitant]
     Dosage: FORM: ORAL FORMULATION (NOT OTHERWISE SPECIFIED)
     Route: 048
  37. MYSLEE [Concomitant]
     Route: 048
  38. LOXONIN [Concomitant]
     Route: 048
  39. MECOBALAMIN [Concomitant]
     Route: 048
  40. FOLIAMIN [Concomitant]
     Route: 048

REACTIONS (8)
  - Anaemia [Recovering/Resolving]
  - Sepsis [Recovered/Resolved]
  - Endocarditis [Recovered/Resolved]
  - Pancytopenia [Unknown]
  - Upper respiratory tract inflammation [Recovered/Resolved]
  - Bacterial sepsis [Recovered/Resolved]
  - Cellulitis [Recovered/Resolved]
  - Pyelonephritis [Unknown]
